FAERS Safety Report 16188156 (Version 1)
Quarter: 2019Q2

REPORT INFORMATION
  Report Type: Report from Study
  Country: None (occurrence: BR)
  Receive Date: 20190412
  Receipt Date: 20190412
  Transmission Date: 20190711
  Serious: Yes (Other)
  Sender: FDA-Public Use
  Company Number: BR-ABBVIE-19K-020-2739859-00

PATIENT
  Age: 81 Year
  Sex: Female

DRUGS (1)
  1. HUMIRA [Suspect]
     Active Substance: ADALIMUMAB
     Indication: RHEUMATOID ARTHRITIS
     Route: 058
     Dates: start: 20100105

REACTIONS (4)
  - Fall [Recovered/Resolved]
  - Bone operation [Unknown]
  - Post procedural complication [Unknown]
  - Pain [Unknown]

NARRATIVE: CASE EVENT DATE: 2019
